FAERS Safety Report 24960671 (Version 4)
Quarter: 2025Q1

REPORT INFORMATION
  Report Type: Spontaneous
  Country: IN (occurrence: IN)
  Receive Date: 20250212
  Receipt Date: 20250226
  Transmission Date: 20250409
  Serious: Yes (Other)
  Sender: PFIZER
  Company Number: IN-PFIZER INC-PV202400068789

PATIENT
  Age: 22 Year
  Sex: Male
  Weight: 68 kg

DRUGS (7)
  1. CIBINQO [Suspect]
     Active Substance: ABROCITINIB
     Indication: Dermatitis atopic
     Dosage: 100 MG, 1X/DAY
     Route: 048
     Dates: start: 20240522, end: 20240801
  2. CIBINQO [Suspect]
     Active Substance: ABROCITINIB
     Dosage: 100 MG, 1X/DAY
     Route: 048
     Dates: start: 20241001
  3. CIBINQO [Suspect]
     Active Substance: ABROCITINIB
     Dosage: 100 MG, ALTERNATE DAY
     Route: 048
  4. CIBINQO [Suspect]
     Active Substance: ABROCITINIB
     Dosage: 100 MG, 1X/DAY
     Route: 048
  5. FLUCORT [FLUOCINOLONE ACETONIDE] [Concomitant]
     Dosage: UNK, 1X/DAY, LOTION, MORNING
  6. FLUTIBACT [Concomitant]
     Dosage: UNK, 1X/DAY, NIGHT
  7. JAKAUTO [Concomitant]
     Dosage: UNK, 1X/DAY, NIGHT

REACTIONS (29)
  - Diabetes mellitus [Unknown]
  - Therapeutic product effect decreased [Unknown]
  - Off label use [Unknown]
  - Condition aggravated [Recovering/Resolving]
  - Skin weeping [Recovered/Resolved]
  - Decreased appetite [Recovering/Resolving]
  - Pruritus [Unknown]
  - Pain [Not Recovered/Not Resolved]
  - Erythema [Unknown]
  - Insomnia [Unknown]
  - Dry skin [Unknown]
  - Skin disorder [Unknown]
  - Stress at work [Unknown]
  - Headache [Unknown]
  - Neck pain [Unknown]
  - Fatigue [Unknown]
  - Ear pain [Unknown]
  - Full blood count abnormal [Recovering/Resolving]
  - Otitis media acute [Unknown]
  - Otitis externa fungal [Unknown]
  - Rhinitis allergic [Unknown]
  - Blood immunoglobulin E increased [Unknown]
  - Blood cholesterol increased [Unknown]
  - Lipids decreased [Unknown]
  - Blood creatinine decreased [Unknown]
  - Wheezing [Unknown]
  - Dyspnoea [Unknown]
  - Heart rate increased [Unknown]
  - Hypersensitivity [Unknown]

NARRATIVE: CASE EVENT DATE: 20240527
